FAERS Safety Report 8285891-9 (Version None)
Quarter: 2012Q2

REPORT INFORMATION
  Report Type: 
  Country: None (occurrence: None)
  Receive Date: 20120414
  Receipt Date: 20101026
  Transmission Date: 20120825
  Serious: Yes (Other)
  Sender: FDA-Public Use
  Company Number: PHHY2010TH093758

PATIENT
  Sex: Male

DRUGS (1)
  1. GLEEVEC [Suspect]
     Indication: GASTROINTESTINAL STROMAL TUMOUR
     Dosage: 4 TABLETS IN THE EVENING
     Route: 048

REACTIONS (8)
  - FATIGUE [None]
  - EYE SWELLING [None]
  - ABDOMINAL MASS [None]
  - ARTHRALGIA [None]
  - RASH [None]
  - SWELLING FACE [None]
  - VOMITING [None]
  - PYREXIA [None]
